FAERS Safety Report 11077690 (Version 4)
Quarter: 2015Q4

REPORT INFORMATION
  Report Type: Spontaneous
  Country: JP (occurrence: JP)
  Receive Date: 20150430
  Receipt Date: 20151113
  Transmission Date: 20160304
  Serious: Yes (Death, Hospitalization, Other)
  Sender: FDA-Public Use
  Company Number: JP-ROCHE-1569735

PATIENT
  Age: 69 Year
  Sex: Female
  Weight: 152 kg

DRUGS (6)
  1. AVASTIN [Suspect]
     Active Substance: BEVACIZUMAB
     Indication: OVARIAN CANCER METASTATIC
     Route: 041
     Dates: start: 20141204, end: 20150119
  2. CARBOPLATIN. [Concomitant]
     Active Substance: CARBOPLATIN
     Indication: OVARIAN CANCER METASTATIC
     Route: 041
     Dates: start: 20140127, end: 2014
  3. PACLITAXEL. [Concomitant]
     Active Substance: PACLITAXEL
     Indication: OVARIAN CANCER METASTATIC
     Route: 041
     Dates: start: 20140127, end: 2014
  4. WARFARIN [Concomitant]
     Active Substance: WARFARIN
     Indication: PULMONARY EMBOLISM
     Dosage: OTHER PURPOSES: DEEP VEIN THROMBOSIS
     Route: 048
     Dates: start: 20141003
  5. DECADRON [Concomitant]
     Active Substance: DEXAMETHASONE
     Indication: PROPHYLAXIS
     Dosage: IT ADMINISTERS IT ONLY ON THE CHEMOTHERAPY DAY.
     Route: 041
     Dates: start: 20141027, end: 20150113
  6. PACLITAXEL. [Concomitant]
     Active Substance: PACLITAXEL
     Dosage: DOSAGE IS UNCERTAIN.
     Route: 041
     Dates: start: 20141027, end: 2014

REACTIONS (3)
  - Gastrointestinal perforation [Not Recovered/Not Resolved]
  - Ovarian cancer metastatic [Fatal]
  - Malignant ascites [Unknown]

NARRATIVE: CASE EVENT DATE: 20150119
